FAERS Safety Report 8764472 (Version 1)
Quarter: 2012Q4

REPORT INFORMATION
  Report Type: 
  Country: US (occurrence: US)
  Receive Date: 20120831
  Receipt Date: 20120831
  Transmission Date: 20130627
  Serious: Yes (Other)
  Sender: FDA-Public Use
  Company Number: CHPA2012US018852

PATIENT
  Age: 64 Year
  Sex: Male

DRUGS (6)
  1. SIMETHICONE [Suspect]
     Indication: FLATULENCE
     Dosage: 125 mg, A DAY, IF NEEDED
     Route: 048
  2. SIMETHICONE [Suspect]
     Dosage: 250 mg, BID
     Route: 048
     Dates: start: 2010
  3. BEANO [Concomitant]
     Dosage: Unk, Unk
  4. ZYRTEC [Concomitant]
     Indication: HYPERSENSITIVITY
     Dosage: Unk, Unk
  5. SIMVASTATIN [Concomitant]
     Indication: BLOOD CHOLESTEROL ABNORMAL
     Dosage: Unk, Unk
  6. NORVASC                                 /DEN/ [Concomitant]
     Indication: HYPERTENSION
     Dosage: Unk, Unk

REACTIONS (1)
  - Weight decreased [Not Recovered/Not Resolved]
